FAERS Safety Report 16808284 (Version 4)
Quarter: 2019Q3

REPORT INFORMATION
  Report Type: Report from Study
  Country: None (occurrence: BE)
  Receive Date: 20190916
  Receipt Date: 20190927
  Transmission Date: 20191005
  Serious: Yes (Hospitalization)
  Sender: FDA-Public Use
  Company Number: BE-ABBVIE-19K-013-2922101-00

PATIENT
  Sex: Male

DRUGS (7)
  1. ASAFLOW [Concomitant]
     Active Substance: ASPIRIN
     Indication: PRODUCT USED FOR UNKNOWN INDICATION
  2. ZOCOR [Concomitant]
     Active Substance: SIMVASTATIN
     Indication: PRODUCT USED FOR UNKNOWN INDICATION
  3. REQUIP [Concomitant]
     Active Substance: ROPINIROLE HYDROCHLORIDE
     Indication: PARKINSON^S DISEASE
     Dates: start: 2019
  4. DUODOPA [Suspect]
     Active Substance: CARBIDOPA\LEVODOPA
     Indication: PARKINSON^S DISEASE
     Dosage: MD=10ML, CD=4.4ML/HR DURING 16HRS, ED=3.5ML
     Route: 050
     Dates: start: 20190902, end: 20190905
  5. PROLOPA HBS [Concomitant]
     Active Substance: BENSERAZIDE\LEVODOPA
     Indication: PRODUCT USED FOR UNKNOWN INDICATION
     Route: 048
  6. DUODOPA [Suspect]
     Active Substance: CARBIDOPA\LEVODOPA
     Dosage: MD=9ML, CD=4.4ML/HR DURING 16HRS, ED=3.5ML
     Route: 050
     Dates: start: 20190905
  7. LACTOSE [Suspect]
     Active Substance: LACTOSE
     Indication: PRODUCT USED FOR UNKNOWN INDICATION
     Route: 065

REACTIONS (9)
  - Psychiatric symptom [Unknown]
  - Restlessness [Unknown]
  - Nocturnal fear [Recovering/Resolving]
  - On and off phenomenon [Unknown]
  - Hypokinesia [Recovering/Resolving]
  - Lactose intolerance [Unknown]
  - Dyskinesia [Unknown]
  - Freezing phenomenon [Unknown]
  - Muscle rigidity [Unknown]

NARRATIVE: CASE EVENT DATE: 201909
